FAERS Safety Report 6554138-3 (Version None)
Quarter: 2010Q1

REPORT INFORMATION
  Report Type: 
  Country: None (occurrence: None)
  Receive Date: 20100127
  Receipt Date: 20100121
  Transmission Date: 20100710
  Serious: Yes (Other)
  Sender: FDA-Public Use
  Company Number: ES-ROCHE-678487

PATIENT
  Sex: Female

DRUGS (3)
  1. ACTEMRA [Suspect]
     Dosage: FORM: INFUSION
     Route: 042
     Dates: start: 20091110, end: 20100110
  2. METHOTREXATE [Concomitant]
     Route: 048
     Dates: start: 20090501
  3. OMEPRAZOLE [Concomitant]
     Indication: STEROID THERAPY
     Route: 048

REACTIONS (3)
  - ARTHRALGIA [None]
  - ARTHRITIS [None]
  - POLYARTHRITIS [None]
